FAERS Safety Report 6444478-0 (Version None)
Quarter: 2009Q4

REPORT INFORMATION
  Report Type: 
  Country: None (occurrence: None)
  Receive Date: 20091118
  Receipt Date: 20091110
  Transmission Date: 20100525
  Serious: Yes (Hospitalization)
  Sender: FDA-Public Use
  Company Number: JO-SANOFI-AVENTIS-2009SA001969

PATIENT
  Age: 66 Year
  Sex: Female

DRUGS (1)
  1. ENOXAPARIN SODIUM [Suspect]
     Route: 058
     Dates: start: 20090701, end: 20090701

REACTIONS (1)
  - CEREBROVASCULAR ACCIDENT [None]
